FAERS Safety Report 5146479-1 (Version None)
Quarter: 2006Q4

REPORT INFORMATION
  Report Type: 
  Country: None (occurrence: None)
  Receive Date: 20061102
  Receipt Date: 20061021
  Transmission Date: 20070319
  Serious: Yes (Other)
  Sender: FDA-Public Use
  Company Number: 2006128761

PATIENT
  Age: 28 Year
  Sex: Female

DRUGS (1)
  1. BENADRYL [Suspect]
     Indication: FOOD ALLERGY
     Dosage: 2 TABELTS ONCE, ORAL
     Route: 048
     Dates: start: 20061021, end: 20061021

REACTIONS (2)
  - PRURITUS GENERALISED [None]
  - SYNCOPE [None]
